FAERS Safety Report 10419740 (Version 1)
Quarter: 2014Q3

REPORT INFORMATION
  Report Type: Spontaneous
  Country: US (occurrence: None)
  Receive Date: 20140827
  Receipt Date: 20140827
  Transmission Date: 20150326
  Serious: Yes (Other)
  Sender: FDA-Public Use
  Company Number: DSC201408-000010

PATIENT
  Age: 0 Day
  Sex: Female
  Weight: .52 kg

DRUGS (1)
  1. SURFAXIN [Suspect]
     Active Substance: 1-PALMITOYL-2-OLEOYL-SN-GLYCERO-3-(PHOSPHO-RAC-(1-GLYCEROL)), SODIUM SALT\COLFOSCERIL PALMITATE\PALMITIC ACID\SINAPULTIDE
     Indication: RESPIRATORY DISTRESS
     Dosage: 5.8 ML/KG IN 4 ALIQUOTS
     Dates: start: 20140801

REACTIONS (2)
  - Pulmonary hypoplasia [None]
  - Pneumothorax [None]

NARRATIVE: CASE EVENT DATE: 20140801
